FAERS Safety Report 16780495 (Version 3)
Quarter: 2024Q2

REPORT INFORMATION
  Report Type: Spontaneous
  Country: ES (occurrence: ES)
  Receive Date: 20190906
  Receipt Date: 20240628
  Transmission Date: 20240715
  Serious: Yes (Death)
  Sender: FDA-Public Use
  Company Number: ES-NOVOPROD-682380

PATIENT
  Age: 62 Year

DRUGS (5)
  1. NOVOSEVEN [Suspect]
     Active Substance: COAGULATION FACTOR VIIA RECOMBINANT HUMAN
     Indication: Acquired haemophilia
     Dosage: UNK
  2. NOVOSEVEN [Suspect]
     Active Substance: COAGULATION FACTOR VIIA RECOMBINANT HUMAN
     Indication: Product used for unknown indication
  3. FEIBA [Concomitant]
     Active Substance: ANTI-INHIBITOR COAGULANT COMPLEX
     Indication: Product used for unknown indication
     Dosage: UNK
  4. ALIROCUMAB [Concomitant]
     Active Substance: ALIROCUMAB
  5. RITUXIMAB [Concomitant]
     Active Substance: RITUXIMAB

REACTIONS (1)
  - Myocardial infarction [Fatal]
